FAERS Safety Report 18269607 (Version 1)
Quarter: 2020Q3

REPORT INFORMATION
  Report Type: Spontaneous
  Country: IT (occurrence: IT)
  Receive Date: 20200915
  Receipt Date: 20200915
  Transmission Date: 20201103
  Serious: Yes (Life-Threatening, Other)
  Sender: FDA-Public Use
  Company Number: IT-MYLANLABS-2020M1077814

PATIENT
  Age: 71 Year
  Sex: Female

DRUGS (1)
  1. RILUZOLE. [Suspect]
     Active Substance: RILUZOLE
     Indication: AMYOTROPHIC LATERAL SCLEROSIS
     Dosage: 50 MILLIGRAM, BID (50 MG BID PER OS)
     Route: 048

REACTIONS (7)
  - Pleural effusion [Recovered/Resolved]
  - Pyrexia [Recovered/Resolved]
  - Nausea [Recovered/Resolved]
  - Ileus [Recovered/Resolved]
  - Haemorrhagic necrotic pancreatitis [Recovered/Resolved]
  - Intra-abdominal fluid collection [Recovered/Resolved]
  - Abdominal pain upper [Recovered/Resolved]
